FAERS Safety Report 17780729 (Version 2)
Quarter: 2020Q2

REPORT INFORMATION
  Report Type: Spontaneous
  Country: US (occurrence: US)
  Receive Date: 20200513
  Receipt Date: 20200515
  Transmission Date: 20200714
  Serious: No
  Sender: FDA-Public Use
  Company Number: NVSC2020US129241

PATIENT
  Age: 30 Year
  Sex: Female

DRUGS (1)
  1. SIGNIFOR LAR [Suspect]
     Active Substance: PASIREOTIDE PAMOATE
     Indication: PITUITARY TUMOUR
     Dosage: 40 MG, QMO
     Route: 065

REACTIONS (3)
  - Pain in extremity [Unknown]
  - Product use in unapproved indication [Unknown]
  - Injection site pain [Unknown]
